FAERS Safety Report 13449656 (Version 1)
Quarter: 2017Q2

REPORT INFORMATION
  Report Type: Spontaneous
  Country: FR (occurrence: FR)
  Receive Date: 20170417
  Receipt Date: 20170417
  Transmission Date: 20170830
  Serious: Yes (Hospitalization)
  Sender: FDA-Public Use
  Company Number: FR-ABBVIE-17P-056-1945596-00

PATIENT
  Age: 59 Year
  Sex: Male

DRUGS (5)
  1. DEPAKOTE [Suspect]
     Active Substance: DIVALPROEX SODIUM
     Indication: BIPOLAR DISORDER
     Route: 048
  2. XEROQUEL (QUETIAPINE FUMARATE) [Interacting]
     Active Substance: QUETIAPINE FUMARATE
     Route: 048
     Dates: start: 20170203, end: 20170203
  3. LEPTICUR (TROPATEPINE HYDROCHLORIDE) [Interacting]
     Active Substance: TROPATEPINE HYDROCHLORIDE
     Indication: PARKINSONISM
     Route: 048
     Dates: end: 20170203
  4. TERALITHE [Concomitant]
     Active Substance: LITHIUM CARBONATE
     Indication: PRODUCT USED FOR UNKNOWN INDICATION
     Route: 065
     Dates: end: 20170302
  5. XEROQUEL (QUETIAPINE FUMARATE) [Interacting]
     Active Substance: QUETIAPINE FUMARATE
     Indication: BIPOLAR DISORDER
     Route: 048
     Dates: start: 20170202, end: 20170202

REACTIONS (2)
  - Confusional state [Recovered/Resolved]
  - Drug interaction [Unknown]

NARRATIVE: CASE EVENT DATE: 20170203
